FAERS Safety Report 7121153-0 (Version None)
Quarter: 2010Q4

REPORT INFORMATION
  Report Type: 
  Country: None (occurrence: None)
  Receive Date: 20101124
  Receipt Date: 20101119
  Transmission Date: 20110411
  Serious: Yes (Death, Hospitalization)
  Sender: FDA-Public Use
  Company Number: US-SANOFI-AVENTIS-2010SA049032

PATIENT
  Sex: Male
  Weight: 95 kg

DRUGS (6)
  1. JEVTANA KIT [Suspect]
     Indication: PROSTATE CANCER
     Dosage: ONCE ECERY 3 WEEKS
     Route: 041
     Dates: start: 20100727, end: 20100727
  2. MORPHINE [Concomitant]
     Indication: PAIN
  3. OXYCODONE HCL AND ACETAMINOPHEN [Concomitant]
     Dosage: 5/325. 1 TO 2 TABLETS EVERY 8 HOURS AS NEEDED
  4. AMLODIPINE [Concomitant]
  5. METOPROLOL [Concomitant]
  6. HUMULIN 70/30 [Concomitant]

REACTIONS (1)
  - DISEASE PROGRESSION [None]
